FAERS Safety Report 24659845 (Version 1)
Quarter: 2024Q4

REPORT INFORMATION
  Report Type: Spontaneous
  Country: CA (occurrence: CA)
  Receive Date: 20241125
  Receipt Date: 20241125
  Transmission Date: 20250115
  Serious: Yes (Other)
  Sender: DAIICHI
  Company Number: CA-ASTRAZENECA-202411CAN007632CA

PATIENT
  Sex: Female

DRUGS (2)
  1. TRASTUZUMAB DERUXTECAN [Suspect]
     Active Substance: TRASTUZUMAB DERUXTECAN
     Indication: Product used for unknown indication
     Dosage: 5.4 MILLIGRAM/KILOGRAM, Q3W
     Route: 040
  2. TRASTUZUMAB DERUXTECAN [Suspect]
     Active Substance: TRASTUZUMAB DERUXTECAN
     Dosage: 253 MILLIGRAM, Q3W
     Route: 040

REACTIONS (2)
  - Cardiac dysfunction [Unknown]
  - Cardiac ventricular thrombosis [Unknown]
